FAERS Safety Report 7347161-2 (Version None)
Quarter: 2011Q1

REPORT INFORMATION
  Report Type: 
  Country: None (occurrence: None)
  Receive Date: 20110311
  Receipt Date: 20110304
  Transmission Date: 20110831
  Serious: Yes (Other)
  Sender: FDA-Public Use
  Company Number: GB-PFIZER INC-2011050261

PATIENT
  Age: 45 Year
  Sex: Female
  Weight: 200 kg

DRUGS (2)
  1. EFFEXOR [Concomitant]
     Indication: DEPRESSION
     Dosage: 75 MG, 4X/DAY
     Route: 048
  2. LYRICA [Suspect]
     Indication: DIABETIC NEUROPATHY
     Dosage: 50 MG, 4X/DAY
     Route: 048
     Dates: start: 20100801, end: 20101101

REACTIONS (4)
  - GINGIVAL SWELLING [None]
  - OROPHARYNGEAL BLISTERING [None]
  - TONGUE BLISTERING [None]
  - SWELLING FACE [None]
